FAERS Safety Report 4458366-2 (Version None)
Quarter: 2004Q3

REPORT INFORMATION
  Report Type: 
  Country: None (occurrence: None)
  Receive Date: 20040924
  Receipt Date: 20040917
  Transmission Date: 20050211
  Serious: Yes (Hospitalization)
  Sender: FDA-Public Use
  Company Number: US-AMGEN-US041781

PATIENT
  Sex: Male

DRUGS (11)
  1. DARBEPOETIN ALFA [Suspect]
     Indication: CARDIAC FAILURE CONGESTIVE
     Route: 058
     Dates: start: 20030423, end: 20040413
  2. DIGOXIN [Concomitant]
     Route: 048
     Dates: start: 19910101
  3. TRICOR [Concomitant]
     Route: 048
     Dates: start: 20021023
  4. ASPIRIN [Concomitant]
     Route: 048
     Dates: start: 20021112
  5. LOTENSIN [Concomitant]
     Route: 048
     Dates: start: 19930101
  6. LASIX [Concomitant]
     Route: 048
     Dates: start: 20030225
  7. K-DUR 10 [Concomitant]
     Route: 048
     Dates: start: 20030225
  8. COREG [Concomitant]
     Route: 048
     Dates: start: 20020204
  9. ALLOPURINOL [Concomitant]
  10. ISOSORBIDE [Concomitant]
     Dates: start: 20021001
  11. K-DUR 10 [Concomitant]
     Route: 048
     Dates: start: 20030225

REACTIONS (3)
  - BODY TEMPERATURE INCREASED [None]
  - CARDIOACTIVE DRUG LEVEL ABOVE THERAPEUTIC [None]
  - CHEST PAIN [None]
